FAERS Safety Report 6504287-0 (Version None)
Quarter: 2009Q4

REPORT INFORMATION
  Report Type: 
  Country: None (occurrence: None)
  Receive Date: 20091217
  Receipt Date: 20091209
  Transmission Date: 20100525
  Serious: Yes (Death, Life-Threatening, Hospitalization)
  Sender: FDA-Public Use
  Company Number: JP-WATSON-2009-09757

PATIENT
  Sex: Male

DRUGS (7)
  1. RAPAFLO [Suspect]
     Indication: BLADDER OBSTRUCTION
     Dosage: 4 MG, BID
     Route: 048
     Dates: start: 20080117, end: 20091027
  2. BUFERIN [Suspect]
     Indication: CEREBRAL INFARCTION
     Dosage: 81 MG, DAILY X 15 YRS
     Route: 048
     Dates: start: 19940601, end: 20091024
  3. OPALMON [Suspect]
     Indication: LUMBAR SPINAL STENOSIS
     Dosage: 15 MG, DAILY X 4 YEARS
     Route: 048
     Dates: start: 20051108, end: 20091023
  4. ADALAT CC [Suspect]
     Indication: HYPERTENSION
     Dosage: 40 MG, DAILY
     Route: 048
     Dates: start: 20080205
  5. TAMIFLU [Concomitant]
     Indication: INFLUENZA
     Dosage: 150 MG, DAILY
     Route: 048
     Dates: start: 20091007, end: 20091011
  6. TAKEPRON [Concomitant]
     Indication: GASTROINTESTINAL DISORDER
     Dosage: 15 MG, DAILY
     Route: 048
     Dates: start: 20091009, end: 20091102
  7. ADALAT [Concomitant]
     Indication: HYPERTENSION
     Dosage: X 14 YEARS
     Route: 048
     Dates: start: 19940101, end: 20080204

REACTIONS (3)
  - ANAEMIA [None]
  - ASPIRATION [None]
  - PLATELET COUNT DECREASED [None]
